FAERS Safety Report 23577408 (Version 1)
Quarter: 2024Q1

REPORT INFORMATION
  Report Type: Spontaneous
  Country: CA (occurrence: CA)
  Receive Date: 20240228
  Receipt Date: 20240228
  Transmission Date: 20240409
  Serious: Yes (Other)
  Sender: FDA-Public Use
  Company Number: CA-002147023-NVSC2024CA037173

PATIENT
  Age: 58 Year
  Sex: Male

DRUGS (3)
  1. MYFORTIC [Suspect]
     Active Substance: MYCOPHENOLATE SODIUM
     Indication: Product used for unknown indication
     Dosage: UNK
     Route: 065
  2. METHOTREXATE [Suspect]
     Active Substance: METHOTREXATE
     Indication: Pulmonary sarcoidosis
     Dosage: UNK
     Route: 065
  3. PREDNISONE [Concomitant]
     Active Substance: PREDNISONE
     Indication: Product used for unknown indication
     Dosage: UNK
     Route: 065

REACTIONS (10)
  - Abdominal discomfort [Unknown]
  - Condition aggravated [Unknown]
  - Respiratory disorder [Unknown]
  - Steroid diabetes [Unknown]
  - Cushingoid [Unknown]
  - Insomnia [Unknown]
  - Glaucoma [Unknown]
  - Sarcoidosis of lymph node [Unknown]
  - Off label use [Unknown]
  - Hepatic enzyme abnormal [Unknown]
